FAERS Safety Report 14102672 (Version 9)
Quarter: 2018Q1

REPORT INFORMATION
  Report Type: Spontaneous
  Country: JP (occurrence: JP)
  Receive Date: 20171018
  Receipt Date: 20180327
  Transmission Date: 20180508
  Serious: Yes (Hospitalization, Other)
  Sender: FDA-Public Use
  Company Number: JP-009507513-1710JPN000189J

PATIENT
  Age: 57 Year
  Sex: Male
  Weight: 60 kg

DRUGS (2)
  1. KEYTRUDA [Suspect]
     Active Substance: PEMBROLIZUMAB
     Indication: SQUAMOUS CELL CARCINOMA OF LUNG
     Dosage: 200 MG, Q3W
     Route: 041
     Dates: start: 20170622, end: 20170622
  2. DECADRON [Concomitant]
     Active Substance: DEXAMETHASONE
     Indication: SQUAMOUS CELL CARCINOMA OF LUNG
     Dosage: 16.0 MG, QD
     Route: 048

REACTIONS (3)
  - Rectal ulcer [Recovered/Resolved]
  - Radiation pneumonitis [Recovering/Resolving]
  - Platelet count decreased [Recovered/Resolved]

NARRATIVE: CASE EVENT DATE: 20170627
